FAERS Safety Report 18987199 (Version 1)
Quarter: 2021Q1

REPORT INFORMATION
  Report Type: Spontaneous
  Country: US (occurrence: US)
  Receive Date: 20210309
  Receipt Date: 20210309
  Transmission Date: 20210420
  Serious: Yes (Disabling)
  Sender: FDA-Public Use
  Company Number: None

PATIENT
  Age: 64 Year
  Sex: Male
  Weight: 99 kg

DRUGS (1)
  1. ENTYVIO [Suspect]
     Active Substance: VEDOLIZUMAB
     Indication: CROHN^S DISEASE
     Dosage: ?          QUANTITY:1 LOADING DOSE;OTHER FREQUENCY:1OF 3;?
     Route: 042
     Dates: start: 20210205, end: 20210212

REACTIONS (6)
  - Dizziness [None]
  - Hypoaesthesia [None]
  - Headache [None]
  - Hypoaesthesia oral [None]
  - Back disorder [None]
  - Arthropathy [None]

NARRATIVE: CASE EVENT DATE: 19210212
